FAERS Safety Report 5026873-X (Version None)
Quarter: 2006Q2

REPORT INFORMATION
  Report Type: 
  Country: None (occurrence: None)
  Receive Date: 20060501
  Receipt Date: 20060208
  Transmission Date: 20061013
  Serious: No
  Sender: FDA-Public Use
  Company Number: 200610787BWH

PATIENT
  Age: 58 Year
  Sex: Female
  Weight: 77.1115 kg

DRUGS (3)
  1. NEXAVAR [Suspect]
     Indication: LUNG NEOPLASM
     Dosage: 400 MG, BID, ORAL
     Route: 048
     Dates: start: 20060129
  2. METOPROLOL TARTRATE [Concomitant]
  3. VYTORIN [Concomitant]

REACTIONS (2)
  - BLOOD PRESSURE INCREASED [None]
  - STOMACH DISCOMFORT [None]
